FAERS Safety Report 4841880-5 (Version None)
Quarter: 2005Q4

REPORT INFORMATION
  Report Type: 
  Country: None (occurrence: None)
  Receive Date: 20051130
  Receipt Date: 20050922
  Transmission Date: 20060501
  Serious: No
  Sender: FDA-Public Use
  Company Number: US-GLAXOSMITHKLINE-A0575451A

PATIENT
  Age: 53 Year
  Sex: Female

DRUGS (5)
  1. WELLBUTRIN XL [Suspect]
     Indication: ANXIETY
     Dosage: 150MG PER DAY
     Route: 048
     Dates: start: 20050706, end: 20050922
  2. LISINOPRIL [Concomitant]
  3. MENTAX [Concomitant]
  4. VYTORIN [Concomitant]
  5. TRAVATAN [Concomitant]

REACTIONS (4)
  - CRYING [None]
  - DISTURBANCE IN ATTENTION [None]
  - EMOTIONAL DISORDER [None]
  - NAUSEA [None]
